FAERS Safety Report 5769847-3 (Version None)
Quarter: 2008Q2

REPORT INFORMATION
  Report Type: 
  Country: None (occurrence: None)
  Receive Date: 20080613
  Receipt Date: 20080410
  Transmission Date: 20081010
  Serious: No
  Sender: FDA-Public Use
  Company Number: US-ABBOTT-08P-163-0446819-00

PATIENT
  Sex: Female
  Weight: 63.56 kg

DRUGS (5)
  1. HUMIRA [Suspect]
     Indication: PSORIATIC ARTHROPATHY
     Route: 058
     Dates: start: 20080410
  2. HUMIRA [Suspect]
     Indication: PSORIASIS
  3. VENLAFAXINE HCL [Concomitant]
     Indication: HOT FLUSH
     Route: 048
     Dates: start: 20070101
  4. HYDROXYCHLOROQUINE SULFATE [Concomitant]
     Indication: PSORIATIC ARTHROPATHY
     Route: 048
     Dates: start: 20070901, end: 20080301
  5. DICLOFENAC [Concomitant]
     Indication: PSORIATIC ARTHROPATHY
     Route: 048
     Dates: start: 20080301

REACTIONS (1)
  - ACCIDENTAL EXPOSURE [None]
